FAERS Safety Report 26199575 (Version 1)
Quarter: 2025Q4

REPORT INFORMATION
  Report Type: Report from Study
  Country: US (occurrence: US)
  Receive Date: 20251225
  Receipt Date: 20251225
  Transmission Date: 20260118
  Serious: Yes (Other)
  Sender: Unknown Manufacturer
  Company Number: US-GENETIX BIOTHERAPEUTICS INC.-US-BBB-25-00077

PATIENT
  Age: 16 Year
  Weight: 44 kg

DRUGS (6)
  1. ZYNTEGLO [Suspect]
     Active Substance: BETIBEGLOGENE AUTOTEMCEL
     Indication: Thalassaemia beta
     Dosage: 8.4 X 10^6 CD34/KG, SINGLE
  2. BUSULFAN [Suspect]
     Active Substance: BUSULFAN
     Indication: Bone marrow conditioning regimen
     Dosage: TARGET CAUC: 62.4-73.6 MG*H/L; 0.8MG/KG =36.05MG FOR 5 DOSES, INCREASED TO 44.7MG FOR 8 DOSES FOR CAUC TARGET 62.4, DECREASED TO 39MG FOR 3 DOSES FOR CAUC TARGET 65.1.
  3. DEFERASIROX [Concomitant]
     Active Substance: DEFERASIROX
     Indication: Product used for unknown indication
     Dosage: 720 MILLIGRAM, QD AM
     Route: 065
  4. DEFERASIROX [Concomitant]
     Active Substance: DEFERASIROX
     Dosage: 360 MILLIGRAM, QD PM
     Route: 065
  5. OMNITROPE [Concomitant]
     Active Substance: SOMATROPIN
     Indication: Product used for unknown indication
     Dosage: 1.6 MILLIGRAM, QD
     Route: 065
  6. FOLIC ACID [Concomitant]
     Active Substance: FOLIC ACID
     Indication: Product used for unknown indication
     Dosage: UNK, UNK
     Route: 065

REACTIONS (7)
  - Red blood cell count decreased [Unknown]
  - Intra-abdominal haemorrhage [Recovered/Resolved]
  - Ascites [Recovered/Resolved]
  - Haemolysis [Unknown]
  - Venoocclusive liver disease [Recovering/Resolving]
  - Platelet count decreased [Recovered/Resolved]
  - Pyrexia [Recovered/Resolved]
